FAERS Safety Report 18956881 (Version 1)
Quarter: 2021Q1

REPORT INFORMATION
  Report Type: Spontaneous
  Country: US (occurrence: US)
  Receive Date: 20210302
  Receipt Date: 20210302
  Transmission Date: 20210420
  Serious: Yes (Hospitalization, Other)
  Sender: FDA-Public Use
  Company Number: US-LUPIN PHARMACEUTICALS INC.-2021-02452

PATIENT
  Age: 66 Year
  Sex: Female

DRUGS (5)
  1. BUPIVACAINE. [Suspect]
     Active Substance: BUPIVACAINE
     Indication: ELECTIVE PROCEDURE
     Dosage: UNK, 2CC OF BUPIVACAINE
     Route: 065
  2. TRIAMCINOLONE ACETONIDE. [Suspect]
     Active Substance: TRIAMCINOLONE ACETONIDE
     Indication: PAIN
  3. BUPIVACAINE. [Suspect]
     Active Substance: BUPIVACAINE
     Indication: PAIN
  4. ISOVUE [Suspect]
     Active Substance: IOPAMIDOL
     Indication: DRUG THERAPY
     Dosage: UNK, 240 CONTRAST DYE
     Route: 065
  5. TRIAMCINOLONE ACETONIDE. [Suspect]
     Active Substance: TRIAMCINOLONE ACETONIDE
     Indication: ELECTIVE PROCEDURE
     Dosage: 40 MILLIGRAM PER MILLILITRE, 1CC
     Route: 065

REACTIONS (1)
  - Clostridium difficile colitis [Unknown]
